FAERS Safety Report 4640579-8 (Version None)
Quarter: 2005Q2

REPORT INFORMATION
  Report Type: 
  Country: None (occurrence: None)
  Receive Date: 20050418
  Receipt Date: 20050401
  Transmission Date: 20051028
  Serious: Yes (Hospitalization)
  Sender: FDA-Public Use
  Company Number: 8009827

PATIENT
  Age: 25 Year
  Sex: Female

DRUGS (7)
  1. KEPPRA [Suspect]
     Indication: ELECTROENCEPHALOGRAM ABNORMAL
     Dosage: 250 MG 1/D PO
     Route: 048
     Dates: start: 20050227, end: 20050308
  2. KEPPRA [Suspect]
     Indication: ELECTROENCEPHALOGRAM ABNORMAL
     Dosage: 500 MG 2/D PO
     Route: 048
     Dates: start: 20050309
  3. KEPPRA [Suspect]
     Indication: ELECTROENCEPHALOGRAM ABNORMAL
     Dosage: 750 MG 2/D PO
     Route: 048
     Dates: end: 20050328
  4. KEPPRA [Suspect]
     Indication: ELECTROENCEPHALOGRAM ABNORMAL
     Dosage: 1500 MG 2/D PO
     Route: 048
     Dates: start: 20050329
  5. TOPAMAX [Suspect]
     Indication: ELECTROENCEPHALOGRAM ABNORMAL
  6. TOPAMAX [Suspect]
     Indication: ELECTROENCEPHALOGRAM ABNORMAL
     Dosage: 125 MG 2/D
     Dates: start: 20050228
  7. MIDODRINE HCL [Concomitant]

REACTIONS (4)
  - CONVULSION [None]
  - ENURESIS [None]
  - LOSS OF CONSCIOUSNESS [None]
  - ORTHOSTATIC HYPOTENSION [None]
